FAERS Safety Report 15957390 (Version 1)
Quarter: 2019Q1

REPORT INFORMATION
  Report Type: Spontaneous
  Country: US (occurrence: US)
  Receive Date: 20190123
  Receipt Date: 20190123
  Transmission Date: 20190417
  Serious: Yes (Death, Other)
  Sender: FDA-Public Use
  Company Number: None

PATIENT
  Age: 66 Year
  Sex: Male

DRUGS (1)
  1. HALOPERIDOL 5MG [Suspect]
     Active Substance: HALOPERIDOL
     Dosage: ?          OTHER FREQUENCY:HS;?
     Route: 048
     Dates: start: 20181229, end: 20190109

REACTIONS (1)
  - Extrapyramidal disorder [None]

NARRATIVE: CASE EVENT DATE: 20190109
